FAERS Safety Report 18465280 (Version 1)
Quarter: 2020Q4

REPORT INFORMATION
  Report Type: Report from Study
  Country: US (occurrence: US)
  Receive Date: 20201104
  Receipt Date: 20201104
  Transmission Date: 20210114
  Serious: Yes (Hospitalization, Other)
  Sender: FDA-Public Use
  Company Number: US-TAKEDA-US202004354

PATIENT
  Age: 10 Year
  Sex: Male

DRUGS (4)
  1. ELAPRASE [Suspect]
     Active Substance: IDURSULFASE
     Dosage: 0.5 MILLIGRAM/KILOGRAM, 1/WEEK
     Route: 042
     Dates: start: 20200908, end: 20200908
  2. ELAPRASE [Suspect]
     Active Substance: IDURSULFASE
     Dosage: 0.5 MILLIGRAM/KILOGRAM, 1/WEEK
     Route: 042
     Dates: start: 20200928, end: 20200928
  3. LOVENOX [LEVOFLOXACIN] [Concomitant]
     Active Substance: LEVOFLOXACIN
  4. ELAPRASE [Suspect]
     Active Substance: IDURSULFASE
     Indication: MUCOPOLYSACCHARIDOSIS II
     Dosage: 24 MILLIGRAM, 1X/WEEK
     Route: 042
     Dates: start: 20190108

REACTIONS (3)
  - Pyrexia [Unknown]
  - Thrombosis [Unknown]
  - Hypersomnia [Unknown]

NARRATIVE: CASE EVENT DATE: 20200127
